FAERS Safety Report 8967610 (Version 4)
Quarter: 2017Q3

REPORT INFORMATION
  Report Type: Spontaneous
  Country: SE (occurrence: DK)
  Receive Date: 20121214
  Receipt Date: 20170831
  Transmission Date: 20171128
  Serious: Yes (Life-Threatening, Congenital Anomaly)
  Sender: FDA-Public Use
  Company Number: SE-PFIZER INC-2012314450

PATIENT
  Sex: Male

DRUGS (1)
  1. CYTOTEC [Suspect]
     Active Substance: MISOPROSTOL
     Dosage: 2X25 MCG WITH FEW HOURS INTERVAL
     Route: 064
     Dates: start: 20110101

REACTIONS (3)
  - Neonatal anoxia [Recovered/Resolved]
  - Maternal exposure timing unspecified [Recovered/Resolved]
  - Heart sounds abnormal [Recovered/Resolved]

NARRATIVE: CASE EVENT DATE: 20110101
